FAERS Safety Report 6205964-1 (Version None)
Quarter: 2009Q2

REPORT INFORMATION
  Report Type: 
  Country: None (occurrence: None)
  Receive Date: 20090527
  Receipt Date: 20090527
  Transmission Date: 20091009
  Serious: No
  Sender: FDA-Public Use
  Company Number: None

PATIENT
  Age: 12 Year
  Sex: Male
  Weight: 42.9783 kg

DRUGS (3)
  1. DIVALPROEX EXTENDED-RELEASE [Suspect]
     Dosage: 250MG QAM PO
     Route: 048
     Dates: start: 20090302
  2. DIVALPROEX EXTENDED-RELEASE [Suspect]
     Dosage: 250MG QAM PO
     Route: 048
     Dates: start: 20090407
  3. DIVALPROEX SODIUM [Suspect]
     Dosage: 500 MG QHS PO
     Route: 048

REACTIONS (3)
  - AFFECTIVE DISORDER [None]
  - AGGRESSION [None]
  - PRODUCT SUBSTITUTION ISSUE [None]
